FAERS Safety Report 11723808 (Version 1)
Quarter: 2015Q4

REPORT INFORMATION
  Report Type: Other
  Country: FR (occurrence: FR)
  Receive Date: 20151111
  Receipt Date: 20151111
  Transmission Date: 20160304
  Serious: Yes (Hospitalization)
  Sender: FDA-Public Use
  Company Number: FR-MYLANLABS-2015M1037529

PATIENT

DRUGS (3)
  1. LEVOFLOXACINE MYLAN 500 MG COMPRIM? PELLICUL? S?CABLE [Suspect]
     Active Substance: LEVOFLOXACIN
     Indication: OSTEITIS
     Dosage: 500 MG, BID
     Route: 048
     Dates: start: 20150922, end: 20151015
  2. BACTRIM [Suspect]
     Active Substance: SULFAMETHOXAZOLE\TRIMETHOPRIM
     Indication: OSTEITIS
     Dosage: 2 DF, BID
     Route: 048
     Dates: start: 20150922, end: 20151015
  3. LEDERFOLINE [Suspect]
     Active Substance: LEUCOVORIN CALCIUM
     Indication: OSTEITIS
     Dosage: 5 MG, QD
     Route: 048
     Dates: start: 20150922, end: 201510

REACTIONS (3)
  - Hyponatraemia [Recovering/Resolving]
  - Nausea [Recovered/Resolved]
  - Vomiting [Recovered/Resolved]

NARRATIVE: CASE EVENT DATE: 20151015
